FAERS Safety Report 5641058-1 (Version None)
Quarter: 2008Q1

REPORT INFORMATION
  Report Type: 
  Country: None (occurrence: None)
  Receive Date: 20080225
  Receipt Date: 20080211
  Transmission Date: 20080703
  Serious: Yes (Hospitalization, Other)
  Sender: FDA-Public Use
  Company Number: GXKR2008IT01574

PATIENT
  Age: 10 Year
  Sex: Male

DRUGS (6)
  1. PREDNISONE [Suspect]
     Indication: ACUTE LYMPHOCYTIC LEUKAEMIA
     Dosage: 20 MG/M2, QD; 40 MG/M2 QD; 60 MG/M2, QD
  2. ASPARAGINASE(ASPARAGINASE) [Suspect]
     Indication: ACUTE LYMPHOCYTIC LEUKAEMIA
     Dosage: 5000 IU/M2, QD INTRAMUSCULAR
     Route: 030
  3. RASBURICASE (RASBURICASE) [Concomitant]
  4. VINCRISTINE [Concomitant]
  5. METHOTREXATE [Concomitant]
  6. DAUNORUBICIN HCL [Concomitant]

REACTIONS (7)
  - ABDOMINAL DISTENSION [None]
  - BLOOD CHOLESTEROL INCREASED [None]
  - FLUID RETENTION [None]
  - HYPERTRIGLYCERIDAEMIA [None]
  - NAUSEA [None]
  - OEDEMA PERIPHERAL [None]
  - PANCREATITIS [None]
